FAERS Safety Report 16482375 (Version 1)
Quarter: 2019Q2

REPORT INFORMATION
  Report Type: Report from Study
  Country: BR (occurrence: BR)
  Receive Date: 20190627
  Receipt Date: 20190627
  Transmission Date: 20190711
  Serious: Yes (Other)
  Sender: FDA-Public Use
  Company Number: BR-UCBSA-2019026121

PATIENT
  Age: 38 Year
  Sex: Female
  Weight: 59 kg

DRUGS (3)
  1. CERTOLIZUMAB PEGOL [Suspect]
     Active Substance: CERTOLIZUMAB PEGOL
     Indication: CROHN^S DISEASE
     Dosage: UNK , MONTHLY (QM)
     Route: 058
     Dates: start: 201805, end: 201904
  2. HYDROCHLOROTHIAZIDE. [Concomitant]
     Active Substance: HYDROCHLOROTHIAZIDE
     Indication: HYPERTENSION
     Dosage: 25 MILLIGRAM, ONCE DAILY (QD)
     Route: 048
  3. LOSARTAN. [Concomitant]
     Active Substance: LOSARTAN
     Indication: HYPERTENSION
     Dosage: 50 MILLIGRAM, ONCE DAILY (QD)
     Route: 048
     Dates: start: 2017

REACTIONS (4)
  - Urinary tract infection [Not Recovered/Not Resolved]
  - Tuberculosis [Unknown]
  - Bronchitis [Recovered/Resolved]
  - Sinusitis [Recovering/Resolving]

NARRATIVE: CASE EVENT DATE: 201901
